FAERS Safety Report 26085972 (Version 1)
Quarter: 2025Q4

REPORT INFORMATION
  Report Type: Spontaneous
  Country: GB (occurrence: GB)
  Receive Date: 20251125
  Receipt Date: 20251125
  Transmission Date: 20260117
  Serious: Yes (Hospitalization)
  Sender: TEVA
  Company Number: GB-ROCHE-1119018

PATIENT
  Age: 42 Year
  Sex: Female
  Weight: 63 kg

DRUGS (10)
  1. DOCETAXEL [Suspect]
     Active Substance: DOCETAXEL
     Indication: Breast cancer
     Dosage: LAST DOSE PRIOR TO ADVERSE AFFECT WAS 24-AUG-2012
     Route: 042
     Dates: start: 20120824
  2. HERCEPTIN [Suspect]
     Active Substance: TRASTUZUMAB
     Indication: Breast cancer
     Dosage: DATE OF LAST DOSE PRIOR TO ADVERSE EVENT: 24-AUG-2012
     Route: 042
     Dates: start: 20120824
  3. ACETAMINOPHEN [Concomitant]
     Active Substance: ACETAMINOPHEN
     Indication: Product used for unknown indication
     Dosage: 1 GR
     Route: 065
     Dates: start: 20120901
  4. CODEINE PHOSPHATE [Concomitant]
     Active Substance: CODEINE PHOSPHATE
     Indication: Product used for unknown indication
     Dosage: 30MG
     Route: 065
     Dates: start: 20120901
  5. BENZYDAMINE [Concomitant]
     Active Substance: BENZYDAMINE
     Indication: Product used for unknown indication
     Dosage: TIME INTERVAL: AS NECESSARY: ORAL RINSE
     Dates: start: 20120901
  6. IBUPROFEN [Concomitant]
     Active Substance: IBUPROFEN
     Indication: Product used for unknown indication
     Route: 065
     Dates: start: 20120901
  7. PLACEBO [Suspect]
     Active Substance: PLACEBO
     Indication: Breast cancer
     Dosage: TIME INTERVAL: 1 TOTAL: FOLLOWED BY MAINTENANCE DOSE, DATE OF LAST DOSE PRIOR TO SAE: 24/AUG/2012
     Route: 042
     Dates: start: 20120824
  8. METOCLOPRAMIDE [Concomitant]
     Active Substance: METOCLOPRAMIDE
     Indication: Product used for unknown indication
     Route: 065
     Dates: start: 20120901
  9. CHLORPHENIRAMINE MALEATE [Concomitant]
     Active Substance: CHLORPHENIRAMINE MALEATE
     Indication: Product used for unknown indication
     Dosage: TIME INTERVAL: AS NECESSARY: 4 MG
     Route: 065
     Dates: start: 20120901
  10. PERTUZUMAB [Suspect]
     Active Substance: PERTUZUMAB
     Indication: Product used for unknown indication
     Route: 042
     Dates: start: 20120824

REACTIONS (1)
  - Neutropenic sepsis [Recovered/Resolved]

NARRATIVE: CASE EVENT DATE: 20120901
